FAERS Safety Report 6690216-6 (Version None)
Quarter: 2010Q2

REPORT INFORMATION
  Report Type: 
  Country: None (occurrence: None)
  Receive Date: 20100412
  Receipt Date: 20091217
  Transmission Date: 20101027
  Serious: No
  Sender: FDA-Public Use
  Company Number: 1000010862

PATIENT
  Age: 54 Year
  Sex: Female

DRUGS (7)
  1. BYSTOLIC [Suspect]
     Indication: HYPERTENSION
     Dosage: 10 MG (10 MG, 1 IN 1 D), ORAL
     Route: 048
     Dates: start: 20091012, end: 20091212
  2. CRESTOR [Concomitant]
  3. EFFEXOR XR [Concomitant]
  4. ACTOS [Concomitant]
  5. VITAMIN D3 [Concomitant]
  6. FOLIC ACID [Concomitant]
  7. POTASSIUM GLUCONATE TAB [Concomitant]

REACTIONS (4)
  - CONTUSION [None]
  - EXCORIATION [None]
  - FALL [None]
  - LACERATION [None]
